FAERS Safety Report 7923452-9 (Version None)
Quarter: 2011Q4

REPORT INFORMATION
  Report Type: 
  Country: None (occurrence: None)
  Receive Date: 20111117
  Receipt Date: 20110203
  Transmission Date: 20120403
  Serious: No
  Sender: FDA-Public Use
  Company Number: US-AMGEN-USASP2011006663

PATIENT
  Sex: Female
  Weight: 30.839 kg

DRUGS (9)
  1. VITAMIN D [Concomitant]
     Dosage: 1000 UNIT, UNK
  2. VITAMIN D [Concomitant]
  3. FOLIC ACID [Concomitant]
     Dosage: 20 MG, UNK
  4. ENBREL [Suspect]
     Indication: PRODUCT USED FOR UNKNOWN INDICATION
     Dosage: 50 MG, QWK
     Route: 058
  5. PLAQUENIL [Concomitant]
     Dosage: 200 MG, UNK
  6. METHOTREXATE [Concomitant]
     Dosage: 2.5 MG, UNK
  7. GINKO BILOBA [Concomitant]
     Dosage: 60 MG, UNK
  8. TEGRETOL [Concomitant]
     Dosage: 200 MG, UNK
  9. CALCIUM W/MAGNESIUM [Concomitant]
     Dosage: UNK

REACTIONS (2)
  - CONTUSION [None]
  - INJECTION SITE HAEMATOMA [None]
